FAERS Safety Report 4509902-9 (Version None)
Quarter: 2004Q4

REPORT INFORMATION
  Report Type: 
  Country: None (occurrence: None)
  Receive Date: 20041119
  Receipt Date: 20041026
  Transmission Date: 20050328
  Serious: Yes (Other)
  Sender: FDA-Public Use
  Company Number: 2004243244US

PATIENT
  Sex: 0

DRUGS (1)
  1. XALATAN [Suspect]
     Indication: INTRAOCULAR PRESSURE INCREASED
     Dosage: OPHTHALMIC
     Route: 047

REACTIONS (3)
  - EYE DISORDER [None]
  - INTRAOCULAR PRESSURE INCREASED [None]
  - PERIORBITAL DISORDER [None]
